FAERS Safety Report 7006527-0 (Version None)
Quarter: 2010Q3

REPORT INFORMATION
  Report Type: 
  Country: None (occurrence: None)
  Receive Date: 20100921
  Receipt Date: 20100921
  Transmission Date: 20110219
  Serious: Yes (Hospitalization)
  Sender: FDA-Public Use
  Company Number: None

PATIENT
  Sex: Male
  Weight: 126.5 kg

DRUGS (5)
  1. LENALIDOMIDE [Suspect]
     Indication: HODGKIN'S DISEASE
     Dosage: 25 MG ONCE DAILY PO
     Route: 048
     Dates: start: 20100819, end: 20100915
  2. FISH OIL [Concomitant]
  3. ASPIRIN [Concomitant]
  4. AMBIEN [Concomitant]
  5. MULTIPLE VITAMIN [Concomitant]

REACTIONS (3)
  - FATIGUE [None]
  - PLEURAL EFFUSION [None]
  - PYREXIA [None]
